FAERS Safety Report 8144584-9 (Version None)
Quarter: 2012Q1

REPORT INFORMATION
  Report Type: 
  Country: None (occurrence: None)
  Receive Date: 20120217
  Receipt Date: 20120203
  Transmission Date: 20120608
  Serious: Yes (Hospitalization)
  Sender: FDA-Public Use
  Company Number: US-ROCHE-1036891

PATIENT
  Sex: Female

DRUGS (3)
  1. DOCETAXEL [Concomitant]
  2. CARBOPLATIN [Concomitant]
  3. HERCEPTIN [Suspect]
     Indication: BREAST CANCER
     Route: 042

REACTIONS (7)
  - RESPIRATORY DISTRESS [None]
  - TOXICITY TO VARIOUS AGENTS [None]
  - TACHYPNOEA [None]
  - HYPOXIA [None]
  - BRONCHOALVEOLAR LAVAGE ABNORMAL [None]
  - DYSPNOEA EXERTIONAL [None]
  - INTERSTITIAL LUNG DISEASE [None]
